FAERS Safety Report 17670110 (Version 3)
Quarter: 2022Q2

REPORT INFORMATION
  Report Type: Spontaneous
  Country: US (occurrence: US)
  Receive Date: 20200415
  Receipt Date: 20220517
  Transmission Date: 20220720
  Serious: No
  Sender: FDA-Public Use
  Company Number: US-PFIZER INC-2020155521

PATIENT
  Age: 58 Year
  Sex: Male

DRUGS (1)
  1. XELJANZ XR [Suspect]
     Active Substance: TOFACITINIB CITRATE
     Indication: Osteoarthritis
     Dosage: 11 MG, UNK
     Dates: start: 20200414

REACTIONS (3)
  - Off label use [Unknown]
  - Diarrhoea [Unknown]
  - Sinus congestion [Unknown]

NARRATIVE: CASE EVENT DATE: 20200101
